FAERS Safety Report 21771075 (Version 1)
Quarter: 2022Q4

REPORT INFORMATION
  Report Type: Spontaneous
  Country: DE (occurrence: DE)
  Receive Date: 20221223
  Receipt Date: 20221223
  Transmission Date: 20230113
  Serious: Yes (Hospitalization)
  Sender: FDA-Public Use
  Company Number: DE-009507513-2212DEU008589

PATIENT
  Age: 76 Year
  Sex: Male

DRUGS (2)
  1. JANUVIA [Suspect]
     Active Substance: SITAGLIPTIN PHOSPHATE
     Dosage: 100 MILLIGRAM
     Dates: start: 202203, end: 20221218
  2. DAPAGLIFLOZIN [Concomitant]
     Active Substance: DAPAGLIFLOZIN
     Dosage: UNK
     Dates: start: 202203

REACTIONS (21)
  - Dysstasia [Recovering/Resolving]
  - Blood glucose increased [Recovering/Resolving]
  - Asthenia [Recovering/Resolving]
  - Fatigue [Recovering/Resolving]
  - Balance disorder [Recovering/Resolving]
  - Fall [Unknown]
  - Fracture [Unknown]
  - Limb injury [Unknown]
  - Head injury [Unknown]
  - Micturition urgency [Recovering/Resolving]
  - Urinary incontinence [Recovering/Resolving]
  - Urinary tract infection [Unknown]
  - Spermatic cord inflammation [Unknown]
  - Influenza [Unknown]
  - Abdominal pain [Recovering/Resolving]
  - Constipation [Recovering/Resolving]
  - Rhinorrhoea [Recovering/Resolving]
  - Weight decreased [Recovering/Resolving]
  - Skin exfoliation [Recovering/Resolving]
  - Confusional state [Recovering/Resolving]
  - Personality change [Recovering/Resolving]

NARRATIVE: CASE EVENT DATE: 20220101
